FAERS Safety Report 7830254-0 (Version None)
Quarter: 2011Q4

REPORT INFORMATION
  Report Type: 
  Country: None (occurrence: None)
  Receive Date: 20111021
  Receipt Date: 20111019
  Transmission Date: 20120403
  Serious: No
  Sender: FDA-Public Use
  Company Number: US-B.I. PHARMACEUTICALS,INC./RIDGEFIELD-2011-BP-24623BP

PATIENT
  Sex: Male

DRUGS (9)
  1. BROBIOTIC [Concomitant]
  2. TOPROL-XL [Concomitant]
  3. NIACIN [Concomitant]
  4. TYLENOL-500 [Concomitant]
  5. INSULIN [Concomitant]
  6. PRADAXA [Suspect]
     Indication: ATRIAL FIBRILLATION
     Dosage: 300 MG
     Route: 048
  7. FLOMAX [Concomitant]
  8. PROTONIX [Concomitant]
  9. PROSCAR [Concomitant]

REACTIONS (2)
  - THROAT IRRITATION [None]
  - SENSATION OF FOREIGN BODY [None]
